FAERS Safety Report 9817551 (Version 1)
Quarter: 2014Q1

REPORT INFORMATION
  Report Type: Report from Study
  Country: US (occurrence: US)
  Receive Date: 20140115
  Receipt Date: 20140115
  Transmission Date: 20141002
  Serious: Yes (Other)
  Sender: FDA-Public Use
  Company Number: US-ROCHE-1332394

PATIENT
  Sex: Male

DRUGS (1)
  1. LUCENTIS [Suspect]
     Indication: EYE HAEMORRHAGE
     Dosage: EACH EYE
     Route: 065

REACTIONS (4)
  - Blindness [Unknown]
  - Cardiac disorder [Unknown]
  - Malaise [Unknown]
  - Nasopharyngitis [Unknown]
